FAERS Safety Report 8180271-9 (Version None)
Quarter: 2012Q1

REPORT INFORMATION
  Report Type: 
  Country: None (occurrence: None)
  Receive Date: 20120302
  Receipt Date: 20111027
  Transmission Date: 20120608
  Serious: No
  Sender: FDA-Public Use
  Company Number: US-GLAXOSMITHKLINE-A0950727A

PATIENT
  Age: 75 Year
  Sex: Female

DRUGS (4)
  1. ZYRTEC [Concomitant]
  2. ASPIRIN [Concomitant]
  3. OLUX E [Suspect]
     Indication: RASH
     Route: 061
     Dates: start: 20111006, end: 20111013
  4. LORAZEPAM [Concomitant]

REACTIONS (3)
  - HYPERSENSITIVITY [None]
  - CHEST DISCOMFORT [None]
  - DYSPNOEA [None]
